FAERS Safety Report 9632385 (Version 1)
Quarter: 2013Q4

REPORT INFORMATION
  Report Type: Spontaneous
  Country: US (occurrence: None)
  Receive Date: 20131018
  Receipt Date: 20131018
  Transmission Date: 20140711
  Serious: Yes (Disabling)
  Sender: FDA-Public Use
  Company Number: None

PATIENT
  Age: 60 Year
  Sex: Female
  Weight: 63.5 kg

DRUGS (1)
  1. LEVOFLOXACIN [Suspect]
     Indication: PROPHYLAXIS
     Dosage: 1 PILL, ONCE DAILY, TAKEN BY MOUTH
     Route: 048

REACTIONS (8)
  - Tremor [None]
  - Tinnitus [None]
  - Pain [None]
  - Neuropathy peripheral [None]
  - Fibromyalgia [None]
  - Cognitive disorder [None]
  - Hallucination, auditory [None]
  - Memory impairment [None]
